APPROVED DRUG PRODUCT: SEVELAMER HYDROCHLORIDE
Active Ingredient: SEVELAMER HYDROCHLORIDE
Strength: 800MG
Dosage Form/Route: TABLET;ORAL
Application: A201068 | Product #002
Applicant: RISING PHARMA HOLDING INC
Approved: Dec 14, 2020 | RLD: No | RS: No | Type: DISCN